FAERS Safety Report 10560441 (Version 1)
Quarter: 2014Q4

REPORT INFORMATION
  Report Type: Spontaneous
  Country: SE (occurrence: SE)
  Receive Date: 20141103
  Receipt Date: 20141103
  Transmission Date: 20150529
  Serious: Yes (Hospitalization)
  Sender: FDA-Public Use
  Company Number: SE-PFIZER INC-2014301455

PATIENT
  Age: 70 Year
  Sex: Male

DRUGS (6)
  1. PANODIL [Concomitant]
     Active Substance: ACETAMINOPHEN
  2. DIGOXIN. [Concomitant]
     Active Substance: DIGOXIN
  3. ATENOLOL. [Concomitant]
     Active Substance: ATENOLOL
  4. FELODIPINE. [Concomitant]
     Active Substance: FELODIPINE
  5. SUTENT [Suspect]
     Active Substance: SUNITINIB MALATE
     Indication: RENAL CANCER
     Dosage: 50 MG, 1X/DAY
     Route: 048
     Dates: start: 20140924, end: 20141012
  6. XARELTO [Concomitant]
     Active Substance: RIVAROXABAN

REACTIONS (5)
  - Toxic skin eruption [Recovered/Resolved]
  - Hepatic function abnormal [Recovered/Resolved]
  - Bone marrow disorder [Recovered/Resolved]
  - Pyrexia [Unknown]
  - Infection [Unknown]

NARRATIVE: CASE EVENT DATE: 20141012
